FAERS Safety Report 24307795 (Version 1)
Quarter: 2024Q3

REPORT INFORMATION
  Report Type: Spontaneous
  Country: DE (occurrence: DE)
  Receive Date: 20240911
  Receipt Date: 20240911
  Transmission Date: 20241017
  Serious: Yes (Other)
  Sender: SANDOZ
  Company Number: DE-EMA-DD-20240903-7482715-132936

PATIENT
  Age: 46 Year
  Sex: Male

DRUGS (1)
  1. FILGRASTIM [Suspect]
     Active Substance: FILGRASTIM
     Indication: Stem cell donor
     Dosage: 3120 UG
     Route: 058
     Dates: start: 20120816, end: 20140109

REACTIONS (6)
  - Atrial fibrillation [Not Recovered/Not Resolved]
  - Bursitis [Recovered/Resolved]
  - Diarrhoea [Not Recovered/Not Resolved]
  - Vitiligo [Not Recovered/Not Resolved]
  - Arthralgia [Unknown]
  - Bone pain [Recovered/Resolved]

NARRATIVE: CASE EVENT DATE: 20120817
